FAERS Safety Report 8539748 (Version 2)
Quarter: 2013Q4

REPORT INFORMATION
  Report Type: Spontaneous
  Country: US (occurrence: US)
  Receive Date: 20120502
  Receipt Date: 20131211
  Transmission Date: 20140711
  Serious: Yes (Other)
  Sender: FDA-Public Use
  Company Number: US-BAYER-2012-041620

PATIENT
  Age: 30 Year
  Sex: Female

DRUGS (5)
  1. YASMIN [Suspect]
  2. YAZ [Suspect]
  3. FLUCONAZOLE [Concomitant]
     Dosage: 150 MG, UNK
  4. AMOXICILLIN W/CLAVULANIC ACID [Concomitant]
     Dosage: 875 MG, UNK
  5. ADVAIR [Concomitant]

REACTIONS (6)
  - Gallbladder injury [None]
  - Cholecystitis chronic [None]
  - Pain [None]
  - Injury [None]
  - Asthenia [None]
  - Emotional distress [None]
